FAERS Safety Report 18013464 (Version 1)
Quarter: 2020Q3

REPORT INFORMATION
  Report Type: Spontaneous
  Country: US (occurrence: US)
  Receive Date: 20200710
  Receipt Date: 20200710
  Transmission Date: 20201103
  Serious: Yes (Other)
  Sender: FDA-Public Use
  Company Number: None

PATIENT
  Age: 59 Year
  Sex: Male
  Weight: 90 kg

DRUGS (14)
  1. MODAFINIL. [Concomitant]
     Active Substance: MODAFINIL
  2. ALL B VITAMINS C D E MG [Concomitant]
  3. CA [Concomitant]
  4. LEVOTHYROXINE. [Concomitant]
     Active Substance: LEVOTHYROXINE
  5. TAMSULOSIN [Concomitant]
     Active Substance: TAMSULOSIN
  6. ALA [Concomitant]
  7. SAW PAWMETTO [Concomitant]
  8. SE  ?COQ?10 [Concomitant]
  9. LISINOPRIL AND HYDROCHLOROTHIAZIDE [Concomitant]
     Active Substance: HYDROCHLOROTHIAZIDE\LISINOPRIL
  10. OMEPRAZOLE. [Concomitant]
     Active Substance: OMEPRAZOLE
  11. ZINC. [Concomitant]
     Active Substance: ZINC
  12. CREATINE [Concomitant]
     Active Substance: CREATINE
  13. TURMERIC [Concomitant]
     Active Substance: HERBALS\TURMERIC
  14. CIPROFLOXACIN TABLET 500 MG [Suspect]
     Active Substance: CIPROFLOXACIN
     Indication: BACTERIAL PROSTATITIS
     Dosage: QUANTITY:1 TABLET(S);?
     Route: 048
     Dates: start: 20200709, end: 20200709

REACTIONS (6)
  - Burning sensation [None]
  - Tendon pain [None]
  - Tendon disorder [None]
  - Eye swelling [None]
  - Muscle twitching [None]
  - Swelling face [None]

NARRATIVE: CASE EVENT DATE: 20200709
